FAERS Safety Report 5590483-6 (Version None)
Quarter: 2008Q1

REPORT INFORMATION
  Report Type: 
  Country: None (occurrence: None)
  Receive Date: 20080114
  Receipt Date: 20071031
  Transmission Date: 20080703
  Serious: No
  Sender: FDA-Public Use
  Company Number: US-BOEHRINGER INGELHEIM PHARMACEUTICALS, INC.-2008-BP-00363BP

PATIENT

DRUGS (1)
  1. MIRAPEX [Suspect]
     Indication: RESTLESS LEGS SYNDROME
     Dates: start: 20050101

REACTIONS (5)
  - HALLUCINATION [None]
  - NARCOLEPSY [None]
  - NUCHAL RIGIDITY [None]
  - OBSESSIVE-COMPULSIVE DISORDER [None]
  - SLEEP TERROR [None]
